FAERS Safety Report 8245194-5 (Version None)
Quarter: 2012Q1

REPORT INFORMATION
  Report Type: 
  Country: None (occurrence: None)
  Receive Date: 20120329
  Receipt Date: 20120316
  Transmission Date: 20120608
  Serious: Yes (Other)
  Sender: FDA-Public Use
  Company Number: US-ROCHE-1035696

PATIENT
  Sex: Male
  Weight: 79.45 kg

DRUGS (1)
  1. ACCUTANE [Suspect]
     Indication: ACNE CYSTIC
     Dates: start: 19830901, end: 19840401

REACTIONS (6)
  - BLOOD TRIGLYCERIDES INCREASED [None]
  - INTESTINAL OBSTRUCTION [None]
  - BLOOD LACTATE DEHYDROGENASE INCREASED [None]
  - INFLAMMATORY BOWEL DISEASE [None]
  - EMOTIONAL DISTRESS [None]
  - CROHN'S DISEASE [None]
